FAERS Safety Report 8096453-0 (Version None)
Quarter: 2012Q1

REPORT INFORMATION
  Report Type: 
  Country: None (occurrence: None)
  Receive Date: 20120129
  Receipt Date: 20111213
  Transmission Date: 20120608
  Serious: No
  Sender: FDA-Public Use
  Company Number: US-ABBOTT-11P-163-0883089-00

PATIENT
  Age: 13 Year
  Sex: Female

DRUGS (6)
  1. FLAGYL [Concomitant]
     Indication: FISTULA
  2. IMODIUM [Concomitant]
     Indication: CROHN'S DISEASE
     Dosage: DAILY
  3. CLARITIN [Concomitant]
     Indication: PRODUCT USED FOR UNKNOWN INDICATION
     Dosage: DAILY
  4. FLAGYL [Concomitant]
  5. STOOL SOFTENER [Concomitant]
     Indication: FISTULA
     Dosage: ONE DAILY
  6. HUMIRA [Suspect]
     Indication: CROHN'S DISEASE
     Dates: start: 20111001

REACTIONS (5)
  - PHARYNGITIS STREPTOCOCCAL [None]
  - GASTROENTERITIS VIRAL [None]
  - NAUSEA [None]
  - VOMITING [None]
  - DIARRHOEA [None]
